FAERS Safety Report 10020150 (Version 2)
Quarter: 2014Q1

REPORT INFORMATION
  Report Type: Spontaneous
  Country: CA (occurrence: CA)
  Receive Date: 20140319
  Receipt Date: 20140319
  Transmission Date: 20141002
  Serious: Yes (Other)
  Sender: FDA-Public Use
  Company Number: CA-AMGEN-CANSP2014012729

PATIENT
  Age: 40 Year
  Sex: Female

DRUGS (2)
  1. ENBREL [Suspect]
     Indication: PSORIATIC ARTHROPATHY
     Dosage: 50 MG, QWK
     Route: 065
     Dates: start: 20140215
  2. METHOTREXATE [Concomitant]
     Dosage: 8 TABLETS PO ONCE WEEKLY
     Route: 048

REACTIONS (6)
  - Cardiac flutter [Not Recovered/Not Resolved]
  - Heart rate increased [Recovered/Resolved]
  - Vertigo [Unknown]
  - Dizziness [Recovered/Resolved]
  - Pallor [Recovered/Resolved]
  - Dry mouth [Not Recovered/Not Resolved]
